FAERS Safety Report 15466853 (Version 3)
Quarter: 2019Q2

REPORT INFORMATION
  Report Type: Spontaneous
  Country: US (occurrence: US)
  Receive Date: 20181005
  Receipt Date: 20190515
  Transmission Date: 20190711
  Serious: Yes (Other)
  Sender: FDA-Public Use
  Company Number: US-BRISTOL-MYERS SQUIBB COMPANY-BMS-2018-090292

PATIENT
  Age: 63 Year
  Sex: Male
  Weight: 79.3 kg

DRUGS (2)
  1. OPDIVO [Suspect]
     Active Substance: NIVOLUMAB
     Indication: MALIGNANT MELANOMA
     Dosage: UNK, Q2WK
     Route: 042
  2. OPDIVO [Suspect]
     Active Substance: NIVOLUMAB
     Indication: PRODUCT USED FOR UNKNOWN INDICATION
     Dosage: UNK UNK, Q3WK
     Route: 042

REACTIONS (6)
  - Musculoskeletal pain [Unknown]
  - Sensitive skin [Unknown]
  - Device failure [Unknown]
  - Metastases to liver [Unknown]
  - Intestinal metastasis [Unknown]
  - Off label use [Unknown]

NARRATIVE: CASE EVENT DATE: 20180927
